FAERS Safety Report 24033545 (Version 1)
Quarter: 2024Q3

REPORT INFORMATION
  Report Type: Report from Study
  Country: US (occurrence: US)
  Receive Date: 20240701
  Receipt Date: 20240701
  Transmission Date: 20241017
  Serious: No
  Sender: ROCHE
  Company Number: US-ROCHE-3513558

PATIENT
  Age: 18 Year
  Sex: Female
  Weight: 89.7 kg

DRUGS (1)
  1. EVRYSDI [Suspect]
     Active Substance: RISDIPLAM
     Indication: Spinal muscular atrophy
     Dosage: 6.6. ML
     Route: 048
     Dates: start: 20240112

REACTIONS (2)
  - Streptococcus test positive [Unknown]
  - Mononucleosis heterophile test positive [Unknown]
